FAERS Safety Report 7517337-X (Version None)
Quarter: 2011Q2

REPORT INFORMATION
  Report Type: 
  Country: None (occurrence: None)
  Receive Date: 20110601
  Receipt Date: 20110525
  Transmission Date: 20111010
  Serious: Yes (Other)
  Sender: FDA-Public Use
  Company Number: GB-PFIZER INC-2010154581

PATIENT
  Age: 61 Year
  Sex: Female

DRUGS (2)
  1. SUNITINIB MALATE [Suspect]
     Indication: METASTATIC RENAL CELL CARCINOMA
     Dosage: 25 MG, 1X/DAY
     Dates: start: 20091201, end: 20101101
  2. ZOLEDRONIC ACID [Suspect]
     Indication: METASTASES TO BONE
     Dosage: 3-4 MG
     Route: 042
     Dates: start: 20091101, end: 20101101

REACTIONS (3)
  - GINGIVAL DISORDER [None]
  - RENAL FAILURE [None]
  - OSTEONECROSIS OF JAW [None]
